FAERS Safety Report 16790619 (Version 2)
Quarter: 2019Q3

REPORT INFORMATION
  Report Type: Report from Study
  Country: CA (occurrence: CA)
  Receive Date: 20190910
  Receipt Date: 20190918
  Transmission Date: 20191005
  Serious: Yes (Other)
  Sender: FDA-Public Use
  Company Number: CA-TAKEDA-2019TUS051300

PATIENT
  Age: 63 Year
  Sex: Female

DRUGS (2)
  1. LETROZOLE. [Concomitant]
     Active Substance: LETROZOLE
  2. IXAZOMIB [Suspect]
     Active Substance: IXAZOMIB
     Indication: PLASMA CELL MYELOMA
     Dosage: 2.3 MILLIGRAM
     Route: 048
     Dates: start: 20190520, end: 20190903

REACTIONS (6)
  - Headache [Recovering/Resolving]
  - Hypoaesthesia [Unknown]
  - Cytopenia [Unknown]
  - Plasma cell myeloma [Unknown]
  - Diplopia [Recovered/Resolved]
  - Hypercalcaemia [Unknown]
